FAERS Safety Report 16197256 (Version 1)
Quarter: 2019Q2

REPORT INFORMATION
  Report Type: Spontaneous
  Country: US (occurrence: US)
  Receive Date: 20190413
  Receipt Date: 20190413
  Transmission Date: 20190711
  Serious: No
  Sender: FDA-Public Use
  Company Number: None

PATIENT
  Age: 42 Year
  Sex: Female
  Weight: 51.75 kg

DRUGS (1)
  1. EMGALITY [Suspect]
     Active Substance: GALCANEZUMAB-GNLM
     Indication: MIGRAINE
     Dosage: ?          QUANTITY:1 INJECTION(S);OTHER FREQUENCY:1X A MONTH;OTHER ROUTE:INJECTION?
     Dates: start: 20190227, end: 20190401

REACTIONS (8)
  - Arthralgia [None]
  - Feeling abnormal [None]
  - Weight increased [None]
  - Memory impairment [None]
  - Fatigue [None]
  - Night sweats [None]
  - Injection site bruising [None]
  - Hyperhidrosis [None]

NARRATIVE: CASE EVENT DATE: 20190301
